FAERS Safety Report 22050560 (Version 1)
Quarter: 2023Q1

REPORT INFORMATION
  Report Type: Spontaneous
  Country: US (occurrence: US)
  Receive Date: 20230301
  Receipt Date: 20230301
  Transmission Date: 20230418
  Serious: Yes (Hospitalization)
  Sender: FDA-Public Use
  Company Number: US-MYLANLABS-2023M1021665

PATIENT
  Age: 26 Year
  Sex: Male

DRUGS (6)
  1. BACLOFEN [Suspect]
     Active Substance: BACLOFEN
     Indication: Drug withdrawal syndrome
     Dosage: 5 MILLIGRAM, TID (RECEIVED THREE TIMES/DAY)
     Route: 065
  2. BACLOFEN [Suspect]
     Active Substance: BACLOFEN
     Dosage: 5 MILLIGRAM, BID
     Route: 065
  3. BACLOFEN [Suspect]
     Active Substance: BACLOFEN
     Dosage: 5 MILLIGRAM, QD (RECEIVED IN THE MORNING)
     Route: 065
  4. BACLOFEN [Suspect]
     Active Substance: BACLOFEN
     Dosage: 2.5 MILLIGRAM, QD (RECEIVED IN THE EVENING)
     Route: 065
  5. BACLOFEN [Suspect]
     Active Substance: BACLOFEN
     Dosage: 2.5 MILLIGRAM, BID
     Route: 065
  6. BACLOFEN [Suspect]
     Active Substance: BACLOFEN
     Dosage: 2.5 MILLIGRAM, QD
     Route: 065

REACTIONS (2)
  - Drug ineffective for unapproved indication [Unknown]
  - Off label use [Unknown]
